FAERS Safety Report 20160454 (Version 1)
Quarter: 2021Q4

REPORT INFORMATION
  Report Type: Spontaneous
  Country: NL (occurrence: NL)
  Receive Date: 20211208
  Receipt Date: 20211208
  Transmission Date: 20220303
  Serious: Yes (Hospitalization)
  Sender: FDA-Public Use
  Company Number: None

PATIENT
  Sex: Female
  Weight: 70 kg

DRUGS (1)
  1. GALANTAMINE [Suspect]
     Active Substance: GALANTAMINE
     Indication: Dementia Alzheimer^s type
     Dosage: 16 MG, QD (1DD1  )
     Route: 065
     Dates: start: 202110, end: 20211022

REACTIONS (2)
  - Arrhythmia [Recovered/Resolved]
  - Circulatory collapse [Recovered/Resolved]
